FAERS Safety Report 4964480-5 (Version None)
Quarter: 2006Q1

REPORT INFORMATION
  Report Type: 
  Country: None (occurrence: None)
  Receive Date: 20060331
  Receipt Date: 20060320
  Transmission Date: 20060701
  Serious: Yes (Other)
  Sender: FDA-Public Use
  Company Number: US_0505117795

PATIENT
  Age: 55 Year
  Sex: Female
  Weight: 113.2 kg

DRUGS (37)
  1. ZYPREXA [Suspect]
     Indication: BIPOLAR DISORDER
     Dosage: 10 MG, EACH EVENING, ORAL
     Route: 048
     Dates: start: 20010831, end: 20040706
  2. KLONOPIN [Concomitant]
  3. DITROPAN [Concomitant]
  4. PHENERGAN (PROMETHAZINE HYDROCHLORIDE) [Concomitant]
  5. LITHIUM CARBONATE [Concomitant]
  6. VIOXX [Concomitant]
  7. PRILOSEC [Concomitant]
  8. NEXIUM [Concomitant]
  9. POTASSIUM CHLORIDE [Concomitant]
  10. FLONASE [Concomitant]
  11. ISONIAZID [Concomitant]
  12. ASTELIN (AZELTASTINE HYDROCHLORIDE) [Concomitant]
  13. OXYBUTYNIN CHLORIDE (OXYBUTYNIN HYDROCHLORIDE) [Concomitant]
  14. DOXYCYCLINE [Concomitant]
  15. ZITHROMAX [Concomitant]
  16. GANI-TUSS NR [Concomitant]
  17. FLUOCINONIDE [Concomitant]
  18. LEXAPRO [Concomitant]
  19. PRINZIDE [Concomitant]
  20. BENZTROPINE MESYLATE [Concomitant]
  21. METOPROLOL (METOPROLOL) [Concomitant]
  22. ERYTHROCIN [Concomitant]
  23. CELEXA [Concomitant]
  24. AMIBID-DM (DEXTROMETHORPHAN, GUAIFENESIN) [Concomitant]
  25. TRIAMCINOLONE [Concomitant]
  26. PLAVIX [Concomitant]
  27. CIPROFLOXACIN HCL [Concomitant]
  28. LOPROX (CICLOPIROX OLAMINE) [Concomitant]
  29. HYDROCODONE BITARTRATE [Concomitant]
  30. SONATA [Concomitant]
  31. DARVOCET-N WITH ACETAMINOPHEN (PROPOXYPHENE NAPSYLATE WITH ACETAMINOPH [Concomitant]
  32. PROMETHAZINE [Concomitant]
  33. CYCLOBENZAPRINE HCL [Concomitant]
  34. GUAIFENESIN (GUAIFENESIN) [Concomitant]
  35. ASPIRIN GRAIN (ACETYLSALICYLIC ACID) [Concomitant]
  36. LASIX (FUROSEMIDE, FUROSEMIDE SODIUM) [Concomitant]
  37. EVISTA [Concomitant]

REACTIONS (8)
  - BLOOD CHOLESTEROL INCREASED [None]
  - BLOOD PRESSURE INCREASED [None]
  - HYPERLIPIDAEMIA [None]
  - INSULIN-REQUIRING TYPE II DIABETES MELLITUS [None]
  - PANCREATITIS [None]
  - PLATELET COUNT DECREASED [None]
  - RECTAL HAEMORRHAGE [None]
  - WHITE BLOOD CELL COUNT DECREASED [None]
